FAERS Safety Report 8798144 (Version 1)
Quarter: 2012Q4

REPORT INFORMATION
  Report Type: 
  Country: NL (occurrence: NL)
  Receive Date: 20120920
  Receipt Date: 20120920
  Transmission Date: 20130627
  Serious: Yes (Life-Threatening)
  Sender: FDA-Public Use
  Company Number: NL-BAYER-2012-098073

PATIENT
  Age: 45 Year
  Sex: Male

DRUGS (1)
  1. ULTRAVIST [Suspect]
     Indication: COMPUTERISED TOMOGRAM KIDNEY
     Dosage: 50 sec (2ml/sec)
     Route: 042
     Dates: start: 20120910, end: 20120910

REACTIONS (11)
  - Urticaria [Recovered/Resolved]
  - Pruritus [Recovered/Resolved]
  - Erythema [Recovered/Resolved]
  - Lip swelling [Recovered/Resolved]
  - Hyperhidrosis [Recovered/Resolved]
  - Laryngeal oedema [Recovered/Resolved]
  - Sense of oppression [Recovered/Resolved]
  - Nausea [Recovered/Resolved]
  - Depressed level of consciousness [Recovered/Resolved]
  - Mydriasis [Recovered/Resolved]
  - Pulse pressure decreased [Recovered/Resolved]
